FAERS Safety Report 7431978-X (Version None)
Quarter: 2011Q1

REPORT INFORMATION
  Report Type: 
  Country: None (occurrence: None)
  Receive Date: 20110302
  Receipt Date: 20101220
  Transmission Date: 20110831
  Serious: No
  Sender: FDA-Public Use
  Company Number: 020929

PATIENT
  Sex: Female
  Weight: 110 kg

DRUGS (9)
  1. MESALAMINE [Concomitant]
  2. AZATHIOPRINE [Concomitant]
  3. LISINOPRIL [Concomitant]
  4. PREDNISONE [Concomitant]
  5. CALCIUM WITH VITAMIN D [Concomitant]
  6. METFORMIN [Concomitant]
  7. CIMZIA [Suspect]
     Indication: CROHN'S DISEASE
     Dosage: 400 MG 1X/28 DAYS SUBCUTANEOUS
     Route: 058
     Dates: start: 20090408
  8. GLYBURIDE [Concomitant]
  9. FLONASE [Concomitant]

REACTIONS (2)
  - ARTHRALGIA [None]
  - ANAEMIA [None]
